FAERS Safety Report 5838208-0 (Version None)
Quarter: 2008Q3

REPORT INFORMATION
  Report Type: 
  Country: None (occurrence: None)
  Receive Date: 20080808
  Receipt Date: 20080731
  Transmission Date: 20090109
  Serious: Yes (Disabling)
  Sender: FDA-Public Use
  Company Number: US-WYE-H05329308

PATIENT
  Sex: Male

DRUGS (1)
  1. EFFEXOR XR [Suspect]
     Indication: MAJOR DEPRESSION
     Dates: start: 20030701

REACTIONS (2)
  - AUTOIMMUNE DISORDER [None]
  - INTERSTITIAL LUNG DISEASE [None]
